FAERS Safety Report 4618541-0 (Version None)
Quarter: 2005Q1

REPORT INFORMATION
  Report Type: 
  Country: None (occurrence: None)
  Receive Date: 20050324
  Receipt Date: 20050314
  Transmission Date: 20050727
  Serious: Yes (Life-Threatening, Hospitalization)
  Sender: FDA-Public Use
  Company Number: 2005-01-0011

PATIENT
  Age: 59 Year
  Sex: Female
  Weight: 68 kg

DRUGS (6)
  1. TEMODAL [Suspect]
     Indication: ASTROCYTOMA
     Dosage: 200 MG/M2
     Dates: start: 20041202, end: 20041206
  2. DEPAKENE [Suspect]
     Dates: end: 20041124
  3. NEURONTIN [Concomitant]
  4. IMOVANE TABLETS [Concomitant]
  5. ATARAX [Concomitant]
  6. CALCIUM CARBONATE/CHOLECALCIFEROL [Concomitant]

REACTIONS (8)
  - ANAEMIA [None]
  - ESCHERICHIA SEPSIS [None]
  - FEBRILE BONE MARROW APLASIA [None]
  - HAEMORRHAGE SUBCUTANEOUS [None]
  - MUCOSAL HAEMORRHAGE [None]
  - NEUTROPENIA [None]
  - STOMATITIS [None]
  - THROMBOCYTOPENIA [None]
